FAERS Safety Report 5850406-9 (Version None)
Quarter: 2008Q3

REPORT INFORMATION
  Report Type: 
  Country: None (occurrence: None)
  Receive Date: 20080819
  Receipt Date: 20080808
  Transmission Date: 20090109
  Serious: Yes (Death)
  Sender: FDA-Public Use
  Company Number: FR-PFIZER INC-2007103429

PATIENT
  Sex: Male

DRUGS (8)
  1. SOLU-MEDROL [Suspect]
     Route: 042
     Dates: start: 20071001, end: 20071005
  2. CISPLATIN [Suspect]
     Route: 042
     Dates: start: 20071001, end: 20071005
  3. ETOPOSIDE [Suspect]
     Route: 042
     Dates: start: 20071001, end: 20071005
  4. BLEOMYCIN SULFATE [Suspect]
     Route: 030
     Dates: start: 20071001, end: 20071001
  5. ZOPHREN [Suspect]
     Route: 042
     Dates: start: 20071001, end: 20071005
  6. HYDROCORTISONE [Suspect]
     Dates: start: 20071001, end: 20071001
  7. EMEND [Concomitant]
     Route: 048
     Dates: start: 20071001, end: 20071003
  8. PLITICAN [Concomitant]
     Route: 042
     Dates: start: 20071001, end: 20071005

REACTIONS (1)
  - NO ADVERSE EVENT [None]
